FAERS Safety Report 8117263-1 (Version None)
Quarter: 2012Q1

REPORT INFORMATION
  Report Type: 
  Country: None (occurrence: None)
  Receive Date: 20120206
  Receipt Date: 20120127
  Transmission Date: 20120608
  Serious: Yes (Disabling)
  Sender: FDA-Public Use
  Company Number: US-MERCK-1104USA02997

PATIENT
  Age: 21 Year
  Sex: Male
  Weight: 56 kg

DRUGS (3)
  1. PROPECIA [Suspect]
     Indication: ANDROGENETIC ALOPECIA
     Route: 048
     Dates: start: 20080911, end: 20090101
  2. KEFLEX [Concomitant]
     Indication: ACNE
     Route: 048
     Dates: start: 20070607
  3. PROPECIA [Suspect]
     Route: 048

REACTIONS (32)
  - FAECES DISCOLOURED [None]
  - ORTHOSTATIC HYPOTENSION [None]
  - BLOOD THYROID STIMULATING HORMONE INCREASED [None]
  - FATIGUE [None]
  - DISTURBANCE IN ATTENTION [None]
  - LOSS OF LIBIDO [None]
  - BLOOD CORTISOL DECREASED [None]
  - MEMORY IMPAIRMENT [None]
  - DYSURIA [None]
  - EJACULATION DISORDER [None]
  - ANXIETY [None]
  - HYPERVENTILATION [None]
  - EJACULATION FAILURE [None]
  - GENITAL HYPOAESTHESIA [None]
  - EMOTIONAL DISTRESS [None]
  - SEBORRHOEIC DERMATITIS [None]
  - SEXUAL DYSFUNCTION [None]
  - DEPRESSION [None]
  - NEUROTRANSMITTER LEVEL ALTERED [None]
  - HYPOTHYROIDISM [None]
  - TOOTH DISORDER [None]
  - GASTRIC DISORDER [None]
  - DISTURBANCE IN SOCIAL BEHAVIOUR [None]
  - ERECTILE DYSFUNCTION [None]
  - ABNORMAL LOSS OF WEIGHT [None]
  - MUSCLE DISORDER [None]
  - MENTAL DISORDER [None]
  - BLOOD TESTOSTERONE DECREASED [None]
  - WRONG TECHNIQUE IN DRUG USAGE PROCESS [None]
  - ADRENAL DISORDER [None]
  - DRUG HYPERSENSITIVITY [None]
  - VISION BLURRED [None]
